FAERS Safety Report 21703032 (Version 1)
Quarter: 2022Q4

REPORT INFORMATION
  Report Type: Spontaneous
  Country: US (occurrence: US)
  Receive Date: 20221209
  Receipt Date: 20221209
  Transmission Date: 20230112
  Serious: Yes (Hospitalization)
  Sender: FDA-Public Use
  Company Number: US-STRIDES ARCOLAB LIMITED-2022SP011784

PATIENT
  Age: 26 Year
  Sex: Male

DRUGS (14)
  1. HALOPERIDOL [Suspect]
     Active Substance: HALOPERIDOL
     Indication: Antipsychotic therapy
     Dosage: UNK
     Route: 065
  2. OLANZAPINE [Suspect]
     Active Substance: OLANZAPINE
     Indication: Antipsychotic therapy
     Dosage: 20 MILLIGRAM, EVERY MORNING (TAKEN IN THE MORNING)
     Route: 048
  3. DIAZEPAM [Suspect]
     Active Substance: DIAZEPAM
     Indication: Catatonia
     Dosage: 20 MILLIGRAM, BID
     Route: 065
  4. ZOLPIDEM [Suspect]
     Active Substance: ZOLPIDEM TARTRATE
     Indication: Catatonia
     Dosage: 10 MILLIGRAM
     Route: 065
  5. ARIPIPRAZOLE [Suspect]
     Active Substance: ARIPIPRAZOLE
     Indication: Antipsychotic therapy
     Dosage: 2 MILLIGRAM, BID
     Route: 065
  6. CHLORPROMAZINE [Suspect]
     Active Substance: CHLORPROMAZINE
     Indication: Antipsychotic therapy
     Dosage: 100 MILLIGRAM
     Route: 030
  7. LORAZEPAM [Suspect]
     Active Substance: LORAZEPAM
     Indication: Neuroleptic malignant syndrome
     Dosage: 2 MILLIGRAM, TID (THREE TIMES A DAY)
     Route: 065
  8. LORAZEPAM [Suspect]
     Active Substance: LORAZEPAM
     Indication: Catatonia
     Dosage: 30 MILLIGRAM, QD (DOSE GRADUALLY INCREASED TO 30MG/DAY AS A STANDING DOSE OR IM)
     Route: 065
  9. RISPERIDONE [Suspect]
     Active Substance: RISPERIDONE
     Indication: Antipsychotic therapy
     Dosage: UNK
     Route: 065
  10. FLUPHENAZINE [Suspect]
     Active Substance: FLUPHENAZINE
     Indication: Antipsychotic therapy
     Dosage: UNK
     Route: 065
  11. LITHIUM [Suspect]
     Active Substance: LITHIUM
     Indication: Antipsychotic therapy
     Dosage: UNK
     Route: 065
  12. CLONAZEPAM [Concomitant]
     Active Substance: CLONAZEPAM
     Indication: Product used for unknown indication
     Dosage: 1MG IN THE MORNING AND 2MG AT BEDTIME
     Route: 065
  13. CLONAZEPAM [Concomitant]
     Active Substance: CLONAZEPAM
     Dosage: 2 MILLIGRAM, AT BED TIME
     Route: 065
  14. PRAZOSIN [Concomitant]
     Active Substance: PRAZOSIN
     Indication: Product used for unknown indication
     Dosage: 1 MILLIGRAM, TID (THREE TIMES A DAY)
     Route: 065

REACTIONS (3)
  - Neuroleptic malignant syndrome [Recovered/Resolved]
  - Rhabdomyolysis [Recovered/Resolved]
  - Drug ineffective for unapproved indication [Unknown]
